FAERS Safety Report 14858083 (Version 2)
Quarter: 2018Q3

REPORT INFORMATION
  Report Type: Report from Study
  Country: US (occurrence: US)
  Receive Date: 20180508
  Receipt Date: 20180706
  Transmission Date: 20181010
  Serious: Yes (Death, Other)
  Sender: FDA-Public Use
  Company Number: US-CIPLA (EU) LIMITED-2018US17260

PATIENT

DRUGS (7)
  1. GEMCITABINE [Suspect]
     Active Substance: GEMCITABINE\GEMCITABINE HYDROCHLORIDE
     Indication: BREAST CANCER
     Dosage: 1000 MG/M2, ON DAY 1 AND DAY 8 EVERY 21 DAYS
     Route: 065
  2. VINORELBINE [Suspect]
     Active Substance: VINORELBINE\VINORELBINE TARTRATE
     Dosage: 20 MG/M2, ON DAY 1 AND DAY 8 EVERY 21
     Route: 065
  3. PEMBROLIZUMAB. [Suspect]
     Active Substance: PEMBROLIZUMAB
     Indication: BREAST CANCER
     Dosage: 2 MG/KG, 30 MIN EVERY 21 DAYS
     Route: 042
  4. VINORELBINE [Suspect]
     Active Substance: VINORELBINE\VINORELBINE TARTRATE
     Indication: BREAST CANCER
     Dosage: 25 MG/M2, ON DAY 1 AND DAY 8 EVERY 21 DAYS
     Route: 065
  5. GEMCITABINE [Suspect]
     Active Substance: GEMCITABINE\GEMCITABINE HYDROCHLORIDE
     Dosage: 800 MG/M2, ON DAY 1 AND DAY 8 EVERY 21 DAYSUNK
     Route: 065
  6. GEMCITABINE [Suspect]
     Active Substance: GEMCITABINE\GEMCITABINE HYDROCHLORIDE
     Dosage: UNK, DOSE REDUCED ON CYCLE 6 DAY 8
     Route: 065
  7. VINORELBINE [Suspect]
     Active Substance: VINORELBINE\VINORELBINE TARTRATE
     Dosage: DOSE REDUCED ON CYCLE 6 DAY 8
     Route: 065

REACTIONS (16)
  - Pain in extremity [Unknown]
  - Dizziness [Unknown]
  - White blood cell count decreased [Unknown]
  - Hypokalaemia [Unknown]
  - Alanine aminotransferase increased [Unknown]
  - Fatigue [Unknown]
  - Myalgia [Unknown]
  - Neutropenia [Unknown]
  - Diarrhoea [Unknown]
  - Upper respiratory tract infection [Unknown]
  - Dysaesthesia [Unknown]
  - Death [Fatal]
  - Aspartate aminotransferase increased [Unknown]
  - Hypoacusis [Unknown]
  - Rash [Unknown]
  - Anaemia [Unknown]
